FAERS Safety Report 25214530 (Version 1)
Quarter: 2025Q2

REPORT INFORMATION
  Report Type: Spontaneous
  Country: FR (occurrence: FR)
  Receive Date: 20250418
  Receipt Date: 20250418
  Transmission Date: 20250716
  Serious: Yes (Life-Threatening)
  Sender: FRESENIUS KABI
  Company Number: None

PATIENT
  Age: 65 Year
  Sex: Female
  Weight: 67 kg

DRUGS (14)
  1. PACLITAXEL [Suspect]
     Active Substance: PACLITAXEL
     Indication: Lung neoplasm malignant
     Route: 042
     Dates: start: 20250308, end: 20250308
  2. ACETYLCYSTEINE [Concomitant]
     Active Substance: ACETYLCYSTEINE
     Indication: Product used for unknown indication
  3. APIXABAN BIOGARAN 5 mg, coated tablet [Concomitant]
     Indication: Product used for unknown indication
  4. BISOPROLOL ACCORD HEALTHCARE 2.5 mg, scored film-coated tablet [Concomitant]
     Indication: Product used for unknown indication
  5. ACIDE FOLIQUE CCD 5 mg, tablet [Concomitant]
     Indication: Product used for unknown indication
  6. FUROSEMIDE ARROW 40 mg, scored tablet [Concomitant]
     Indication: Product used for unknown indication
  7. HYDROXYZINE MYLAN 25 mg, scored film-coated tablet [Concomitant]
     Indication: Product used for unknown indication
  8. LIDOCAINE [Concomitant]
     Active Substance: LIDOCAINE
     Indication: Product used for unknown indication
  9. LETROZOLE ARROW 2.5 mg, film-coated tablet [Concomitant]
     Indication: Product used for unknown indication
  10. MIRTAZAPINE [Concomitant]
     Active Substance: MIRTAZAPINE
     Indication: Product used for unknown indication
  11. METOCLOPRAMIDE SANDOZ 10 mg, scored tablet [Concomitant]
     Indication: Product used for unknown indication
  12. CALCIUM PHOSPHATE, DIBASIC, ANHYDROUS\MAGNESIUM GLYCEROPHOSPHATE\PHOSP [Concomitant]
     Active Substance: CALCIUM PHOSPHATE, DIBASIC, ANHYDROUS\MAGNESIUM GLYCEROPHOSPHATE\PHOSPHORIC ACID\SODIUM PHOSPHATE, D
     Indication: Product used for unknown indication
  13. PAROXETINE HYDROCHLORIDE [Concomitant]
     Active Substance: PAROXETINE HYDROCHLORIDE
     Indication: Product used for unknown indication
  14. POTASSIUM CHLORIDE [Concomitant]
     Active Substance: POTASSIUM CHLORIDE
     Indication: Product used for unknown indication

REACTIONS (1)
  - Acute respiratory distress syndrome [Recovered/Resolved]

NARRATIVE: CASE EVENT DATE: 20250308
